FAERS Safety Report 6180141-1 (Version None)
Quarter: 2009Q2

REPORT INFORMATION
  Report Type: 
  Country: None (occurrence: None)
  Receive Date: 20090505
  Receipt Date: 20090313
  Transmission Date: 20091009
  Serious: No
  Sender: FDA-Public Use
  Company Number: US-BAYER-200911084BCC

PATIENT
  Age: 58 Year
  Sex: Female
  Weight: 77 kg

DRUGS (6)
  1. ALEVE (CAPLET) [Suspect]
     Indication: ARTHRALGIA
     Dosage: TOTAL DAILY DOSE: 440 MG  UNIT DOSE: 220 MG
     Route: 048
     Dates: start: 20090313
  2. ALEVE (CAPLET) [Suspect]
     Dosage: AS USED: 220 MG  UNIT DOSE: 200 MG
     Route: 048
  3. OXYCODONE LORTAB [Concomitant]
     Indication: DRUG USE FOR UNKNOWN INDICATION
     Route: 065
     Dates: start: 20090312
  4. LEXAPRO [Concomitant]
     Indication: DRUG USE FOR UNKNOWN INDICATION
  5. ASPIRIN [Concomitant]
     Indication: BLOOD DISORDER
     Dosage: 2 TABLETS
     Route: 048
  6. NEXIUM [Concomitant]
     Indication: DYSPEPSIA
     Route: 065

REACTIONS (6)
  - DYSPNOEA [None]
  - FEELING ABNORMAL [None]
  - HYPOAESTHESIA [None]
  - MUTISM [None]
  - NAUSEA [None]
  - OROPHARYNGEAL DISCOMFORT [None]
